FAERS Safety Report 6069727-2 (Version None)
Quarter: 2009Q1

REPORT INFORMATION
  Report Type: 
  Country: None (occurrence: None)
  Receive Date: 20090209
  Receipt Date: 20090128
  Transmission Date: 20090719
  Serious: Yes (Hospitalization)
  Sender: FDA-Public Use
  Company Number: DE-AMGEN-US331359

PATIENT
  Sex: Male
  Weight: 51 kg

DRUGS (4)
  1. ENBREL [Suspect]
     Indication: JUVENILE ARTHRITIS
     Route: 058
     Dates: start: 20070806, end: 20080902
  2. NAPROXEN [Suspect]
     Indication: JUVENILE ARTHRITIS
     Route: 048
     Dates: start: 19920601
  3. LANTAREL [Suspect]
     Indication: JUVENILE ARTHRITIS
     Route: 058
     Dates: start: 19931101, end: 20080301
  4. FOLIC ACID [Concomitant]
     Route: 048

REACTIONS (1)
  - CROHN'S DISEASE [None]
